FAERS Safety Report 24292649 (Version 1)
Quarter: 2024Q3

REPORT INFORMATION
  Report Type: Spontaneous
  Country: US (occurrence: None)
  Receive Date: 20240905
  Receipt Date: 20240905
  Transmission Date: 20241016
  Serious: Yes (Death, Hospitalization)
  Sender: Public
  Company Number: None

PATIENT
  Age: 65 Year
  Sex: Male
  Weight: 85.5 kg

DRUGS (9)
  1. LISINOPRIL [Suspect]
     Active Substance: LISINOPRIL
     Indication: Hypertension
     Dosage: OTHER QUANTITY : 1 CAPSULE(S);?
     Route: 048
  2. LISINOPRIL [Suspect]
     Active Substance: LISINOPRIL
     Indication: Hypertensive heart disease
  3. LISINOPRIL [Concomitant]
     Active Substance: LISINOPRIL
  4. AMLODIPINE [Concomitant]
     Active Substance: AMLODIPINE BESYLATE
  5. DOXEPIN [Concomitant]
     Active Substance: DOXEPIN
  6. LEVOTHYROXINE [Concomitant]
  7. VITAMINS [Concomitant]
     Active Substance: VITAMINS
  8. daily aspirin [Concomitant]
  9. omega-3 [Concomitant]

REACTIONS (5)
  - Angioedema [None]
  - Endotracheal intubation complication [None]
  - Tracheostomy malfunction [None]
  - Product use complaint [None]
  - Product use complaint [None]

NARRATIVE: CASE EVENT DATE: 20240415
